FAERS Safety Report 6338545-X (Version None)
Quarter: 2009Q3

REPORT INFORMATION
  Report Type: 
  Country: None (occurrence: None)
  Receive Date: 20090901
  Receipt Date: 20090826
  Transmission Date: 20100115
  Serious: Yes (Life-Threatening)
  Sender: FDA-Public Use
  Company Number: 2009TJ0194

PATIENT
  Age: 20 Year
  Sex: Male

DRUGS (1)
  1. TWINJECT (EPINEPHRINE) [Suspect]
     Indication: ANAPHYLACTIC REACTION
     Dosage: AS NEEDED

REACTIONS (1)
  - NEEDLE ISSUE [None]
